FAERS Safety Report 10671111 (Version 1)
Quarter: 2014Q4

REPORT INFORMATION
  Report Type: Spontaneous
  Country: IT (occurrence: IT)
  Receive Date: 20141223
  Receipt Date: 20141223
  Transmission Date: 20150529
  Serious: Yes (Hospitalization)
  Sender: FDA-Public Use
  Company Number: PHHY2014IT163957

PATIENT
  Age: 95 Year
  Sex: Female

DRUGS (2)
  1. QUETIAPINE [Suspect]
     Active Substance: QUETIAPINE
     Dosage: 125 MG, QD
     Dates: start: 20140101
  2. DELORAZEPAM [Suspect]
     Active Substance: DELORAZEPAM
     Dosage: 14 DRP, QD
     Dates: start: 20140101

REACTIONS (1)
  - Hyporesponsive to stimuli [Recovering/Resolving]

NARRATIVE: CASE EVENT DATE: 20141123
